FAERS Safety Report 22645569 (Version 1)
Quarter: 2023Q2

REPORT INFORMATION
  Report Type: Spontaneous
  Country: US (occurrence: US)
  Receive Date: 20230627
  Receipt Date: 20230627
  Transmission Date: 20230722
  Serious: Yes (Other)
  Sender: FDA-Public Use
  Company Number: US-ABBVIE-5306094

PATIENT

DRUGS (2)
  1. CLARITHROMYCIN [Suspect]
     Active Substance: CLARITHROMYCIN
     Indication: Product used for unknown indication
     Route: 048
  2. IBRANCE [Suspect]
     Active Substance: PALBOCICLIB
     Indication: Bone cancer
     Dosage: FORM STRENGTH: 125 MILLIGRAMS?FREQUENCY TEXT: DAILY, TAKE FOR 21 DAYS AND 7 DAYS OFF.
     Route: 048

REACTIONS (4)
  - HER2 negative breast cancer [Unknown]
  - Drug hypersensitivity [Unknown]
  - Bone cancer [Unknown]
  - Urticaria [Unknown]
